FAERS Safety Report 4275368-X (Version None)
Quarter: 2004Q1

REPORT INFORMATION
  Report Type: 
  Country: None (occurrence: None)
  Receive Date: 20040116
  Receipt Date: 20040105
  Transmission Date: 20041129
  Serious: No
  Sender: FDA-Public Use
  Company Number: TAP2004Q00035

PATIENT
  Age: 31 Year
  Sex: Female

DRUGS (1)
  1. LUPRON DEPOT-3 [Suspect]
     Indication: ENDOMETRIOMA
     Dosage: 3.75 MG, ONCE, INTRAMUSCULAR
     Route: 030
     Dates: start: 19980101, end: 19980101

REACTIONS (24)
  - AMNESIA [None]
  - ANGINA PECTORIS [None]
  - ARTHRALGIA [None]
  - BONE PAIN [None]
  - CAESAREAN SECTION [None]
  - CHILLS [None]
  - COMPLICATIONS OF MATERNAL EXPOSURE TO THERAPEUTIC DRUGS [None]
  - CONTUSION [None]
  - CONVULSION [None]
  - DIZZINESS [None]
  - FIBROMYALGIA [None]
  - HEART RATE INCREASED [None]
  - HYPERTENSION [None]
  - LOSS OF CONSCIOUSNESS [None]
  - MIGRAINE [None]
  - MULTIPLE CHEMICAL SENSITIVITY [None]
  - MUSCLE ATROPHY [None]
  - MUSCULAR WEAKNESS [None]
  - PAIN [None]
  - PARAESTHESIA [None]
  - RASH [None]
  - TRANSIENT ISCHAEMIC ATTACK [None]
  - TREMOR [None]
  - WEIGHT DECREASED [None]
